FAERS Safety Report 7400093-3 (Version None)
Quarter: 2011Q2

REPORT INFORMATION
  Report Type: 
  Country: None (occurrence: None)
  Receive Date: 20110407
  Receipt Date: 20100616
  Transmission Date: 20111010
  Serious: Yes (Other)
  Sender: FDA-Public Use
  Company Number: PHHY2010DE90848

PATIENT

DRUGS (1)
  1. EXTAVIA [Suspect]
     Dosage: UNK

REACTIONS (3)
  - DRY THROAT [None]
  - PSORIASIS [None]
  - DRY MOUTH [None]
